FAERS Safety Report 12601568 (Version 1)
Quarter: 2016Q3

REPORT INFORMATION
  Report Type: Spontaneous
  Country: US (occurrence: None)
  Receive Date: 20160727
  Receipt Date: 20160727
  Transmission Date: 20161109
  Serious: Yes (Other)
  Sender: FDA-Public Use
  Company Number: None

PATIENT
  Age: 28 Year
  Sex: Male
  Weight: 63.5 kg

DRUGS (1)
  1. FINASTERIDE. [Suspect]
     Active Substance: FINASTERIDE
     Indication: ALOPECIA
     Route: 048
     Dates: start: 20160110, end: 20160111

REACTIONS (16)
  - Middle insomnia [None]
  - Libido decreased [None]
  - Erectile dysfunction [None]
  - Asthenia [None]
  - Impaired healing [None]
  - Palpitations [None]
  - Exercise tolerance decreased [None]
  - Dry skin [None]
  - Insomnia [None]
  - Appetite disorder [None]
  - Thirst decreased [None]
  - Stress [None]
  - Pollakiuria [None]
  - Muscular weakness [None]
  - Balanoposthitis [None]
  - Sleep disorder [None]

NARRATIVE: CASE EVENT DATE: 20160321
